FAERS Safety Report 4450159-5 (Version None)
Quarter: 2004Q3

REPORT INFORMATION
  Report Type: 
  Country: None (occurrence: None)
  Receive Date: 20040915
  Receipt Date: 20040722
  Transmission Date: 20050211
  Serious: Yes (Death, Hospitalization)
  Sender: FDA-Public Use
  Company Number: PHBS2004JP09851

PATIENT
  Age: 73 Year
  Sex: Female

DRUGS (2)
  1. VOLTAREN-XR [Suspect]
     Indication: RHEUMATOID ARTHRITIS
     Dosage: 75 MG/DAY
     Route: 048
     Dates: end: 20030924
  2. PREDNISOLONE [Suspect]
     Indication: RHEUMATOID ARTHRITIS
     Route: 065
     Dates: end: 20030924

REACTIONS (15)
  - ABDOMINAL PAIN UPPER [None]
  - ABDOMINAL REBOUND TENDERNESS [None]
  - BLOOD ALKALINE PHOSPHATASE INCREASED [None]
  - BLOOD LACTATE DEHYDROGENASE INCREASED [None]
  - C-REACTIVE PROTEIN INCREASED [None]
  - DEMENTIA [None]
  - DUODENAL ULCER PERFORATION [None]
  - GASTRECTOMY PARTIAL [None]
  - GASTRIC ULCER PERFORATION [None]
  - LAPAROTOMY [None]
  - NAUSEA [None]
  - PERITONITIS [None]
  - PNEUMONIA [None]
  - VOMITING [None]
  - WHITE BLOOD CELL COUNT INCREASED [None]
